FAERS Safety Report 21241069 (Version 1)
Quarter: 2022Q3

REPORT INFORMATION
  Report Type: Spontaneous
  Country: US (occurrence: US)
  Receive Date: 20220823
  Receipt Date: 20220823
  Transmission Date: 20221027
  Serious: Yes (Other)
  Sender: FDA-Public Use
  Company Number: US-BRISTOL-MYERS SQUIBB COMPANY-2022-089596

PATIENT
  Age: 67 Year
  Sex: Female

DRUGS (1)
  1. ISTODAX [Suspect]
     Active Substance: ROMIDEPSIN
     Indication: Non-Hodgkin^s lymphoma
     Dosage: DOSE : 27 MG;     FREQ : ^27 MG ON DAY 8,15, 22 OF A 35-DAY CYCLE^
     Route: 065
     Dates: end: 20220806

REACTIONS (2)
  - Malignant neoplasm progression [Unknown]
  - Drug ineffective [Unknown]
